FAERS Safety Report 18473942 (Version 1)
Quarter: 2020Q4

REPORT INFORMATION
  Report Type: Report from Study
  Country: US (occurrence: US)
  Receive Date: 20201106
  Receipt Date: 20201106
  Transmission Date: 20210114
  Serious: Yes (Hospitalization)
  Sender: FDA-Public Use
  Company Number: US-UPSHER-SMITH LABORATORIES, LLC-2020USL00582

PATIENT
  Age: 76 Year
  Sex: Male

DRUGS (4)
  1. ENTRESTO [Suspect]
     Active Substance: SACUBITRIL\VALSARTAN
     Dosage: 24.26 MG, 2X/DAY
     Route: 048
     Dates: start: 202005
  2. AMIODARONE HYDROCHLORIDE. [Suspect]
     Active Substance: AMIODARONE HYDROCHLORIDE
  3. 14 UNSPECIFIED MEDICATIONS [Concomitant]
  4. INSULIN [Concomitant]
     Active Substance: INSULIN NOS

REACTIONS (11)
  - Balance disorder [Not Recovered/Not Resolved]
  - Gait disturbance [Not Recovered/Not Resolved]
  - Blood glucose fluctuation [Unknown]
  - Heart rate variability increased [Unknown]
  - Oxygen saturation abnormal [Unknown]
  - Blood magnesium abnormal [Recovering/Resolving]
  - Blood sodium abnormal [Recovering/Resolving]
  - Blood pressure fluctuation [Unknown]
  - Blood potassium abnormal [Recovering/Resolving]
  - Transient ischaemic attack [Unknown]
  - Decreased activity [Not Recovered/Not Resolved]

NARRATIVE: CASE EVENT DATE: 202005
